FAERS Safety Report 13932470 (Version 1)
Quarter: 2017Q3

REPORT INFORMATION
  Report Type: Spontaneous
  Country: US (occurrence: US)
  Receive Date: 20170904
  Receipt Date: 20170904
  Transmission Date: 20171127
  Serious: Yes (Death, Life-Threatening, Hospitalization)
  Sender: FDA-Public Use
  Company Number: US-ACCORD-057992

PATIENT
  Age: 58 Year
  Sex: Male

DRUGS (9)
  1. SULFAMETHOXAZOLE/TRIMETHOPRIM [Concomitant]
     Indication: PNEUMOCYSTIS JIROVECII PNEUMONIA
  2. METHYLPREDNISOLONE. [Suspect]
     Active Substance: METHYLPREDNISOLONE
     Indication: IMMUNOSUPPRESSION
     Dosage: 500 MG TWICE A DAY FOR 3 DAYS
  3. PREDNISONE. [Suspect]
     Active Substance: PREDNISONE
     Indication: IMMUNOSUPPRESSION
  4. VALGANCICLOVIR/VALGANCICLOVIR HYDROCHLORIDE [Concomitant]
  5. MICAFUNGIN/MICAFUNGIN SODIUM [Concomitant]
  6. MYCOPHENOLIC ACID. [Suspect]
     Active Substance: MYCOPHENOLIC ACID
     Indication: IMMUNOSUPPRESSION
  7. OXYGEN. [Concomitant]
     Active Substance: OXYGEN
  8. CYCLOPHOSPHAMIDE/CYCLOPHOSPHAMIDE MONOHYDRATE [Suspect]
     Active Substance: CYCLOPHOSPHAMIDE
     Indication: IMMUNOSUPPRESSION
  9. CICLOSPORIN [Suspect]
     Active Substance: CYCLOSPORINE
     Indication: IMMUNOSUPPRESSION

REACTIONS (2)
  - Condition aggravated [Fatal]
  - Drug ineffective [Fatal]
